FAERS Safety Report 7055652-7 (Version None)
Quarter: 2010Q4

REPORT INFORMATION
  Report Type: 
  Country: None (occurrence: None)
  Receive Date: 20101021
  Receipt Date: 20101014
  Transmission Date: 20110411
  Serious: Yes (Death, Hospitalization, Other)
  Sender: FDA-Public Use
  Company Number: FR-BAYER-201042043GPV

PATIENT
  Age: 73 Year
  Sex: Male
  Weight: 130 kg

DRUGS (7)
  1. NEXAVAR [Suspect]
     Indication: HEPATIC NEOPLASM MALIGNANT
     Dosage: UNIT DOSE: 200 MG
     Route: 048
     Dates: start: 20100505, end: 20100523
  2. ACUPAN [Concomitant]
     Dates: start: 20100525
  3. ACEBUTOLOL [Concomitant]
     Dates: start: 20030101
  4. NEXIUM [Concomitant]
     Dates: start: 19950101
  5. RAMIPRIL [Concomitant]
     Dates: start: 20100101, end: 20100525
  6. LASIX [Concomitant]
     Dates: start: 20030101, end: 20100525
  7. PREVISCAN [Concomitant]
     Dates: start: 19990101, end: 20100525

REACTIONS (2)
  - FATIGUE [None]
  - MULTI-ORGAN FAILURE [None]
